FAERS Safety Report 10542322 (Version 1)
Quarter: 2014Q4

REPORT INFORMATION
  Report Type: Spontaneous
  Country: US (occurrence: None)
  Receive Date: 20141010
  Receipt Date: 20141010
  Transmission Date: 20150529
  Serious: Yes (Hospitalization, Other)
  Sender: FDA-Public Use
  Company Number: 163-POMAL-14055474

PATIENT
  Age: 78 Year
  Sex: Male
  Weight: 91.63 kg

DRUGS (16)
  1. LEVOTHYROXINE [Concomitant]
     Active Substance: LEVOTHYROXINE
  2. SENSIPAR(CINACALCET HYDROCHLORIDE) [Concomitant]
  3. CALCIUM [Concomitant]
     Active Substance: CALCIUM
  4. AMLODIPINE BESTYLATE (AMLODIPINE BESILATE) [Concomitant]
  5. ZYRTEC(CETIRIZINE HYDROCHLORIDE) [Concomitant]
  6. ARICEPT(DONEPEZIL HYDROCHLORIDE) [Concomitant]
  7. CYTRA-2 [Concomitant]
     Active Substance: CITRIC ACID MONOHYDRATE\TRISODIUM CITRATE DIHYDRATE
  8. LISINOPRIL. [Concomitant]
     Active Substance: LISINOPRIL
  9. VICODIN [Concomitant]
     Active Substance: ACETAMINOPHEN\HYDROCODONE BITARTRATE
  10. LYRICA(PREGABALIN) [Concomitant]
  11. BEELITH [Concomitant]
  12. PROTONIX [Concomitant]
     Active Substance: PANTOPRAZOLE SODIUM
  13. ALLOPURINOL(ALLPURINOL) [Concomitant]
  14. COREG(CARVEDILOL) [Concomitant]
  15. POMALYST [Suspect]
     Active Substance: POMALIDOMIDE
     Indication: PLASMA CELL MYELOMA
     Route: 048
     Dates: start: 201404
  16. ASPIRIN(ACETYLSALICYLIC ACID) [Concomitant]
     Active Substance: ASPIRIN

REACTIONS (4)
  - Lethargy [None]
  - Diarrhoea [None]
  - Asthenia [None]
  - Fatigue [None]

NARRATIVE: CASE EVENT DATE: 2014
